FAERS Safety Report 17207680 (Version 1)
Quarter: 2019Q4

REPORT INFORMATION
  Report Type: Spontaneous
  Country: US (occurrence: US)
  Receive Date: 20191227
  Receipt Date: 20191227
  Transmission Date: 20200122
  Serious: No
  Sender: FDA-Public Use
  Company Number: US-MYLANLABS-2019M1122836

PATIENT
  Sex: Female
  Weight: 54 kg

DRUGS (1)
  1. LIDOCAINE PATCH [Suspect]
     Active Substance: LIDOCAINE
     Indication: MUSCULOSKELETAL CHEST PAIN
     Dosage: UNK
     Route: 003

REACTIONS (4)
  - Pain [Unknown]
  - Product adhesion issue [Recovering/Resolving]
  - Drug ineffective for unapproved indication [Unknown]
  - Product quality issue [Unknown]
